FAERS Safety Report 8230968-7 (Version None)
Quarter: 2012Q1

REPORT INFORMATION
  Report Type: 
  Country: None (occurrence: None)
  Receive Date: 20120323
  Receipt Date: 20120321
  Transmission Date: 20120608
  Serious: Yes (Other)
  Sender: FDA-Public Use
  Company Number: JP-PFIZER INC-2012072855

PATIENT

DRUGS (2)
  1. SERTRALINE HYDROCHLORIDE [Suspect]
     Indication: NEUROSIS
     Dosage: UNK
  2. SERTRALINE HYDROCHLORIDE [Suspect]
     Indication: DEPRESSION

REACTIONS (1)
  - ACTIVATION SYNDROME [None]
